FAERS Safety Report 5007564-8 (Version None)
Quarter: 2006Q2

REPORT INFORMATION
  Report Type: 
  Country: None (occurrence: None)
  Receive Date: 20060522
  Receipt Date: 20060511
  Transmission Date: 20061013
  Serious: Yes (Other)
  Sender: FDA-Public Use
  Company Number: US-JNJFOC-20060403457

PATIENT
  Sex: Female
  Weight: 73.48 kg

DRUGS (17)
  1. REMICADE [Suspect]
  2. REMICADE [Suspect]
     Dosage: WEEK 2
  3. REMICADE [Suspect]
     Dosage: WEEK 6
  4. REMICADE [Suspect]
     Indication: RHEUMATOID ARTHRITIS
     Dosage: WEEK 0
  5. LOTREL [Concomitant]
  6. LOTREL [Concomitant]
  7. ESTRADIOL [Concomitant]
  8. SYNTHROID [Concomitant]
  9. SEROQUEL [Concomitant]
  10. CELEXA [Concomitant]
  11. KLONOPIN [Concomitant]
  12. TEGRETOL [Concomitant]
  13. PLAQUENIL [Concomitant]
  14. LAMICTAL [Concomitant]
  15. ZYPREXA [Concomitant]
  16. IRON [Concomitant]
  17. BONIVA [Concomitant]

REACTIONS (2)
  - BIPOLAR DISORDER [None]
  - CONDITION AGGRAVATED [None]
